FAERS Safety Report 5217483-X (Version None)
Quarter: 2006Q4

REPORT INFORMATION
  Report Type: 
  Country: None (occurrence: None)
  Receive Date: 20061130
  Receipt Date: 20060705
  Transmission Date: 20070319
  Serious: Yes (Hospitalization)
  Sender: FDA-Public Use
  Company Number: US200603000456

PATIENT
  Age: 45 Year
  Sex: Male
  Weight: 90.7 kg

DRUGS (2)
  1. ZYPREXA [Suspect]
     Dates: start: 20041001, end: 20050220
  2. FLUOXETINE [Concomitant]

REACTIONS (5)
  - DIABETES MELLITUS [None]
  - DIABETIC KETOACIDOSIS [None]
  - GLYCOSURIA [None]
  - KETONURIA [None]
  - POLYDIPSIA [None]
